FAERS Safety Report 19248417 (Version 2)
Quarter: 2021Q2

REPORT INFORMATION
  Report Type: Report from Study
  Country: FR (occurrence: FR)
  Receive Date: 20210512
  Receipt Date: 20210602
  Transmission Date: 20210717
  Serious: Yes (Other)
  Sender: FDA-Public Use
  Company Number: FR-BAYER-2021-089987

PATIENT
  Age: 55 Year
  Sex: Male

DRUGS (5)
  1. LAROTRECTINIB [Suspect]
     Active Substance: LAROTRECTINIB
     Indication: PANCREATIC CARCINOMA STAGE IV
     Dosage: 100 MG, BID
     Route: 048
     Dates: start: 20210212, end: 20210223
  2. LAROTRECTINIB [Suspect]
     Active Substance: LAROTRECTINIB
     Indication: METASTASES TO PERITONEUM
  3. LAROTRECTINIB [Suspect]
     Active Substance: LAROTRECTINIB
     Indication: METASTASES TO LUNG
     Dosage: 75 MG, BID
     Route: 048
     Dates: start: 20210303
  4. PERINDOPRIL [Concomitant]
     Active Substance: PERINDOPRIL
     Indication: HYPERTENSION
     Dosage: 8 MG, QD
     Route: 048
     Dates: start: 2000
  5. UROREC [Concomitant]
     Active Substance: SILODOSIN
     Indication: BENIGN PROSTATIC HYPERPLASIA
     Dosage: 4 MG, QD
     Route: 048
     Dates: start: 2010

REACTIONS (1)
  - Hyperaesthesia [Recovered/Resolved]

NARRATIVE: CASE EVENT DATE: 20210223
